FAERS Safety Report 4551705-3 (Version None)
Quarter: 2005Q1

REPORT INFORMATION
  Report Type: 
  Country: None (occurrence: None)
  Receive Date: 20050111
  Receipt Date: 20050104
  Transmission Date: 20050727
  Serious: Yes (Life-Threatening, Hospitalization)
  Sender: FDA-Public Use
  Company Number: 2005GB00006

PATIENT
  Age: 48 Year
  Sex: Female
  Weight: 50 kg

DRUGS (5)
  1. LIDOCAINE [Suspect]
     Indication: NECK PAIN
     Dates: start: 20040903, end: 20040903
  2. KENALOG [Suspect]
     Indication: NECK PAIN
     Dosage: 40 MG/ML UNK IT
     Route: 038
     Dates: start: 20040903, end: 20040903
  3. TRAMADOL HCL [Concomitant]
  4. DICLOFENAC [Concomitant]
  5. THYROXINE [Concomitant]

REACTIONS (2)
  - MEDICATION ERROR [None]
  - RESPIRATORY ARREST [None]
